FAERS Safety Report 26065968 (Version 2)
Quarter: 2025Q4

REPORT INFORMATION
  Report Type: Spontaneous
  Country: US (occurrence: US)
  Receive Date: 20251119
  Receipt Date: 20251203
  Transmission Date: 20260118
  Serious: Yes (Hospitalization, Other)
  Sender: NOVARTIS
  Company Number: US-002147023-NVSC2025US175063

PATIENT
  Age: 0 Year
  Weight: 8 kg

DRUGS (8)
  1. ZOLGENSMA [Suspect]
     Active Substance: ONASEMNOGENE ABEPARVOVEC-XIOI
     Indication: Spinal muscular atrophy
     Dosage: 46.8 ML, ONCE/SINGLE (1.1X10^14VG/KG DOSED AT PATIENT WEIGHT = 8.4KG)
     Route: 042
     Dates: start: 20251003, end: 20251003
  2. PREDNISOLONE [Concomitant]
     Active Substance: PREDNISOLONE
     Indication: Product used for unknown indication
     Dosage: 2 MG/KG, QD
     Route: 048
     Dates: start: 20251027, end: 20251103
  3. METHYLPREDNISOLONE [Concomitant]
     Active Substance: METHYLPREDNISOLONE
     Indication: Product used for unknown indication
     Dosage: 20 MG/KG, QD
     Route: 042
     Dates: start: 20251104, end: 20251105
  4. METHYLPREDNISOLONE [Concomitant]
     Active Substance: METHYLPREDNISOLONE
     Dosage: 30 MG/KG, QD
     Route: 042
     Dates: start: 20251106, end: 20251108
  5. METHYLPREDNISOLONE [Concomitant]
     Active Substance: METHYLPREDNISOLONE
     Dosage: 20 MG/KG, QD
     Route: 042
     Dates: start: 20251109
  6. METHYLPREDNISOLONE [Concomitant]
     Active Substance: METHYLPREDNISOLONE
     Dosage: 10 MG/KG, QD
     Route: 042
     Dates: start: 20251111
  7. SIROLIMUS [Concomitant]
     Active Substance: SIROLIMUS
     Indication: Product used for unknown indication
     Dosage: UNK (3MG/M^2 DIVIDED Q12H LOADING DOSE, TROUGH LEVEL 8.4)
     Route: 065
     Dates: start: 20251109
  8. SIROLIMUS [Concomitant]
     Active Substance: SIROLIMUS
     Dosage: UNK (1MG/M^2 DIVIDED Q12H MAINTENANCE STARTING)
     Route: 065
     Dates: start: 20251110

REACTIONS (1)
  - Liver function test increased [Unknown]

NARRATIVE: CASE EVENT DATE: 20251003
